FAERS Safety Report 5226075-8 (Version None)
Quarter: 2007Q1

REPORT INFORMATION
  Report Type: 
  Country: None (occurrence: None)
  Receive Date: 20070201
  Receipt Date: 20070122
  Transmission Date: 20070707
  Serious: Yes (Hospitalization)
  Sender: FDA-Public Use
  Company Number: HQWYE698420DEC06

PATIENT
  Sex: Male
  Weight: 67 kg

DRUGS (13)
  1. ENBREL [Suspect]
     Indication: RHEUMATOID ARTHRITIS
     Route: 058
     Dates: start: 20060628, end: 20061017
  2. PREDNISOLONE [Concomitant]
     Indication: RHEUMATOID ARTHRITIS
     Route: 048
     Dates: start: 19970101
  3. PREDNISOLONE [Concomitant]
     Route: 048
  4. PREDNISOLONE [Concomitant]
     Route: 048
  5. HYPEN [Concomitant]
     Indication: RHEUMATOID ARTHRITIS
     Route: 048
  6. GLAKAY [Concomitant]
     Indication: OSTEOPOROSIS
     Route: 048
     Dates: start: 20040115, end: 20061019
  7. BENET [Concomitant]
     Indication: OSTEOPOROSIS
     Route: 048
     Dates: start: 20050829
  8. ALFAROL [Concomitant]
     Indication: OSTEOPOROSIS
     Route: 048
     Dates: end: 20061019
  9. GASTER [Concomitant]
     Route: 048
     Dates: end: 20061019
  10. CYANOCOBALAMIN [Concomitant]
     Route: 048
     Dates: start: 20040329
  11. FOLIAMIN [Concomitant]
     Dosage: UNKNOWN
     Route: 048
     Dates: start: 20050411
  12. RHEUMATREX [Concomitant]
     Indication: RHEUMATOID ARTHRITIS
     Dosage: UNKNOWN
     Route: 048
     Dates: start: 20031201
  13. SELBEX [Concomitant]
     Route: 048

REACTIONS (3)
  - GLOMERULONEPHRITIS MEMBRANOUS [None]
  - GLUCOSE URINE PRESENT [None]
  - PROTEIN URINE PRESENT [None]
